FAERS Safety Report 10373668 (Version 1)
Quarter: 2014Q3

REPORT INFORMATION
  Report Type: Spontaneous
  Country: AU (occurrence: AU)
  Receive Date: 20140809
  Receipt Date: 20140809
  Transmission Date: 20150326
  Serious: Yes (Other)
  Sender: FDA-Public Use
  Company Number: 2014SP002411

PATIENT
  Age: 35 Year
  Sex: Male

DRUGS (2)
  1. OMNARIS [Suspect]
     Active Substance: CICLESONIDE
     Indication: RHINITIS
     Route: 045
     Dates: start: 20140320, end: 20140403
  2. XARELTO [Concomitant]
     Active Substance: RIVAROXABAN

REACTIONS (1)
  - Chorioretinopathy [Recovering/Resolving]
